FAERS Safety Report 8801650 (Version 2)
Quarter: 2015Q1

REPORT INFORMATION
  Report Type: Report from Study
  Country: US (occurrence: US)
  Receive Date: 20120921
  Receipt Date: 20150303
  Transmission Date: 20150721
  Serious: Yes (Death)
  Sender: FDA-Public Use
  Company Number: US-ROCHE-1101922

PATIENT
  Sex: Female

DRUGS (33)
  1. ABRAXANE [Concomitant]
     Active Substance: PACLITAXEL
     Dosage: IN EVACUATED BAGS OVER 30^ WEEKLY
     Route: 042
     Dates: start: 20071015
  2. PROCRIT [Concomitant]
     Active Substance: ERYTHROPOIETIN
     Dosage: 40KU
     Route: 065
     Dates: start: 20080128
  3. AVASTIN [Suspect]
     Active Substance: BEVACIZUMAB
     Dosage: AVASTIN 10MG/KG IV IN 1000CC NS * 30^ ONCE IN 2 WEEKS
     Route: 042
     Dates: start: 20080128
  4. ABRAXANE [Concomitant]
     Active Substance: PACLITAXEL
     Dosage: IN EVACUATED BAGS OVER 30^ WEEKLY
     Route: 042
     Dates: start: 20071022
  5. ABRAXANE [Concomitant]
     Active Substance: PACLITAXEL
     Dosage: IN EVACUATED BAGS OVER 30^ WEEKLY
     Route: 042
     Dates: start: 20071227
  6. AVASTIN [Suspect]
     Active Substance: BEVACIZUMAB
     Route: 042
     Dates: start: 20080114
  7. ABRAXANE [Concomitant]
     Active Substance: PACLITAXEL
     Dosage: IN EVACUATED BAGS OVER 30^ WEEKLY
     Route: 042
     Dates: start: 20071008
  8. ABRAXANE [Concomitant]
     Active Substance: PACLITAXEL
     Dosage: IN EVACUATED BAGS OVER 30^ WEEKLY
     Route: 042
     Dates: start: 20071212
  9. PROCRIT [Concomitant]
     Active Substance: ERYTHROPOIETIN
     Dosage: 40KU
     Route: 065
     Dates: start: 20071126
  10. AVASTIN [Suspect]
     Active Substance: BEVACIZUMAB
     Indication: BREAST CANCER FEMALE
     Dosage: AVASTIN 10MG/KG IV IN 1000CC NS * 30^ ONCE IN 2 WEEKS
     Route: 042
     Dates: start: 20070622
  11. AVASTIN [Suspect]
     Active Substance: BEVACIZUMAB
     Indication: BONE CANCER
     Dosage: AVASTIN 10MG/KG IV IN 1000CC NS * 30^ ONCE IN 2 WEEKS
     Route: 042
     Dates: start: 20071008
  12. AVASTIN [Suspect]
     Active Substance: BEVACIZUMAB
     Dosage: AVASTIN 10MG/KG IV IN 1000CC NS * 30^ ONCE IN 2 WEEKS
     Route: 042
     Dates: start: 20080211
  13. DEXAMETHASONE. [Concomitant]
     Active Substance: DEXAMETHASONE
     Route: 048
  14. ABRAXANE [Concomitant]
     Active Substance: PACLITAXEL
     Dosage: IN EVACUATED BAGS OVER 30^ WEEKLY
     Route: 042
     Dates: start: 20071126
  15. PROCRIT [Concomitant]
     Active Substance: ERYTHROPOIETIN
     Dosage: 40KU
     Route: 065
  16. AVASTIN [Suspect]
     Active Substance: BEVACIZUMAB
     Indication: BONE CANCER
     Dosage: AVASTIN 10MG/KG IV IN 1000CC NS * 30^ ONCE IN 2 WEEKS
     Route: 042
     Dates: start: 20070924
  17. AVASTIN [Suspect]
     Active Substance: BEVACIZUMAB
     Route: 042
     Dates: start: 20071212
  18. ABRAXANE [Concomitant]
     Active Substance: PACLITAXEL
     Dosage: IN EVACUATED BAGS OVER 30^ WEEKLY
     Route: 042
     Dates: start: 20070924
  19. ABRAXANE [Concomitant]
     Active Substance: PACLITAXEL
     Dosage: IN EVACUATED BAGS OVER 30^ WEEKLY
     Route: 042
     Dates: start: 20080114
  20. ABRAXANE [Concomitant]
     Active Substance: PACLITAXEL
     Route: 042
  21. PROCRIT [Concomitant]
     Active Substance: ERYTHROPOIETIN
     Dosage: 40KU
     Route: 065
     Dates: start: 20071105
  22. ABRAXANE [Concomitant]
     Active Substance: PACLITAXEL
     Dosage: IN EVACUATED BAGS OVER 30^ WEEKLY
     Route: 042
     Dates: start: 20080128
  23. DECADRON [Concomitant]
     Active Substance: DEXAMETHASONE
     Route: 048
  24. AVASTIN [Suspect]
     Active Substance: BEVACIZUMAB
     Route: 042
     Dates: start: 20071022
  25. AVASTIN [Suspect]
     Active Substance: BEVACIZUMAB
     Route: 042
     Dates: start: 20071126
  26. AVASTIN [Suspect]
     Active Substance: BEVACIZUMAB
     Dosage: AVASTIN 10MG/KG IV IN 1000CC NS * 30^ ONCE IN 2 WEEKS
     Route: 042
     Dates: start: 20071227
  27. ABRAXANE [Concomitant]
     Active Substance: PACLITAXEL
     Dosage: IN EVACUATED BAGS OVER 30^ WEEKLY
     Route: 042
     Dates: start: 20071112
  28. ABRAXANE [Concomitant]
     Active Substance: PACLITAXEL
     Dosage: IN EVACUATED BAGS OVER 30^ WEEKLY
     Route: 042
     Dates: start: 20080211
  29. PROCRIT [Concomitant]
     Active Substance: ERYTHROPOIETIN
     Dosage: 40KU
     Route: 065
     Dates: start: 20080211
  30. ANZEMET [Concomitant]
     Active Substance: DOLASETRON MESYLATE
     Route: 065
  31. ABRAXANE [Concomitant]
     Active Substance: PACLITAXEL
     Dosage: IN EVACUATED BAGS OVER 30^ WEEKLY
     Route: 042
     Dates: start: 20071001
  32. ABRAXANE [Concomitant]
     Active Substance: PACLITAXEL
     Dosage: IN EVACUATED BAGS OVER 30^ WEEKLY
     Route: 042
     Dates: start: 20071105
  33. PROCRIT [Concomitant]
     Active Substance: ERYTHROPOIETIN
     Dosage: 40KU
     Route: 065
     Dates: start: 20071112

REACTIONS (3)
  - Malaise [Unknown]
  - Off label use [Unknown]
  - Death [Fatal]
